FAERS Safety Report 10206606 (Version 1)
Quarter: 2014Q2

REPORT INFORMATION
  Report Type: Spontaneous
  Country: US (occurrence: US)
  Receive Date: 20140530
  Receipt Date: 20140530
  Transmission Date: 20141212
  Serious: No
  Sender: FDA-Public Use
  Company Number: US-GLAXOSMITHKLINE-A1060512A

PATIENT
  Age: 45 Year
  Sex: Female

DRUGS (1)
  1. FLOLAN [Suspect]
     Indication: COR PULMONALE CHRONIC
     Dosage: 10NGKM CONTINUOUS
     Route: 042

REACTIONS (1)
  - Anxiety [Unknown]
